FAERS Safety Report 19981046 (Version 1)
Quarter: 2021Q4

REPORT INFORMATION
  Report Type: Spontaneous
  Country: CN (occurrence: CN)
  Receive Date: 20211021
  Receipt Date: 20211021
  Transmission Date: 20220304
  Serious: Yes (Life-Threatening, Hospitalization, Disabling, Other)
  Sender: FDA-Public Use
  Company Number: CN-PFIZER INC-202101370861

PATIENT
  Age: 32 Year
  Sex: Male
  Weight: 60 kg

DRUGS (3)
  1. MEROPENEM [Suspect]
     Active Substance: MEROPENEM
     Indication: Infection
     Dosage: 0.5 G, 4X/DAY (QID)
     Dates: start: 20210921, end: 20210927
  2. MEROPENEM [Suspect]
     Active Substance: MEROPENEM
     Dosage: 0.5 G, 4X/DAY (QID)
     Dates: start: 20210921, end: 20210927
  3. SODIUM CHLORIDE [Concomitant]
     Active Substance: SODIUM CHLORIDE
     Dosage: 50 ML, 4X/DAY
     Dates: start: 20210921, end: 20210927

REACTIONS (3)
  - White blood cell count decreased [Recovered/Resolved]
  - Neutropenia [Recovered/Resolved]
  - Agranulocytosis [Recovered/Resolved]

NARRATIVE: CASE EVENT DATE: 20210924
